FAERS Safety Report 10469888 (Version 2)
Quarter: 2014Q4

REPORT INFORMATION
  Report Type: Report from Study
  Country: US (occurrence: US)
  Receive Date: 20140923
  Receipt Date: 20141110
  Transmission Date: 20150528
  Serious: Yes (Hospitalization, Other)
  Sender: FDA-Public Use
  Company Number: US-ALEXION PHARMACEUTICALS INC-A201403622

PATIENT

DRUGS (1)
  1. SOLIRIS [Suspect]
     Active Substance: ECULIZUMAB
     Indication: HAEMOLYTIC URAEMIC SYNDROME
     Dosage: 900 MG, UNK
     Route: 042

REACTIONS (10)
  - Blood lactate dehydrogenase increased [Unknown]
  - Haemoglobin abnormal [Unknown]
  - Blood creatinine abnormal [Unknown]
  - Haematocrit abnormal [Unknown]
  - Blood lactate dehydrogenase increased [Unknown]
  - Blood urea abnormal [Unknown]
  - Glomerulonephropathy [Not Recovered/Not Resolved]
  - Platelet count abnormal [Unknown]
  - Blood creatinine increased [Not Recovered/Not Resolved]
  - Drug ineffective [Not Recovered/Not Resolved]

NARRATIVE: CASE EVENT DATE: 20140815
